FAERS Safety Report 8206746-1 (Version None)
Quarter: 2012Q1

REPORT INFORMATION
  Report Type: 
  Country: None (occurrence: None)
  Receive Date: 20120314
  Receipt Date: 20120305
  Transmission Date: 20120608
  Serious: Yes (Hospitalization)
  Sender: FDA-Public Use
  Company Number: US-BRISTOL-MYERS SQUIBB COMPANY-16432288

PATIENT
  Age: 49 Year
  Sex: Male
  Weight: 76 kg

DRUGS (14)
  1. PACLITAXEL [Suspect]
     Indication: NON-SMALL CELL LUNG CANCER
     Dosage: SOLUTION FOR TOTAL DAILY DOSE 408MG
     Route: 042
     Dates: start: 20080509
  2. MIRALAX [Concomitant]
     Dates: start: 20080515
  3. ACTIQ [Concomitant]
     Dates: start: 20080521
  4. DOCUSATE SODIUM [Concomitant]
     Dates: start: 20080503
  5. PREGABALIN [Concomitant]
     Dates: start: 20080520, end: 20080608
  6. PROMETHAZINE [Concomitant]
     Dates: start: 20080509
  7. LYRICA [Concomitant]
     Dates: start: 20080609
  8. CARBOPLATIN [Suspect]
     Indication: NON-SMALL CELL LUNG CANCER
     Dosage: 1DF=AUC 6 SOLUTION FOR A DAILY DOSE OF 613MG
     Route: 042
     Dates: start: 20080509
  9. HYDROMORPHONE HCL [Concomitant]
     Dates: start: 20080502, end: 20080607
  10. CESAMET [Concomitant]
     Dates: start: 20080609
  11. METHADONE HCL [Suspect]
     Route: 048
     Dates: start: 20080502
  12. ZOFRAN [Concomitant]
     Dates: start: 20080509
  13. DILAUDID [Suspect]
     Route: 048
     Dates: start: 20080502, end: 20080608
  14. CP-751,871 [Suspect]
     Indication: NON-SMALL CELL LUNG CANCER
     Dosage: SOLUTION FOR A TOTAL DAILY DOSE OF 1466MG
     Route: 042
     Dates: start: 20080509

REACTIONS (4)
  - HYPONATRAEMIA [None]
  - HYPERCALCAEMIA [None]
  - DELIRIUM [None]
  - PAIN [None]
